FAERS Safety Report 25765378 (Version 1)
Quarter: 2025Q3

REPORT INFORMATION
  Report Type: Spontaneous
  Country: CN (occurrence: CN)
  Receive Date: 20250905
  Receipt Date: 20250905
  Transmission Date: 20251020
  Serious: Yes (Hospitalization, Other)
  Sender: SANOFI AVENTIS
  Company Number: CN-SA-2025SA265190

PATIENT
  Age: 44 Year
  Sex: Male

DRUGS (3)
  1. ELOXATIN [Suspect]
     Active Substance: OXALIPLATIN
     Indication: Headache
     Dosage: 0.2 G, QD (0.2 G/D1)
     Route: 041
     Dates: start: 20250724, end: 20250724
  2. PEGASPARGASE [Suspect]
     Active Substance: PEGASPARGASE
     Indication: Headache
     Dosage: 3750 IU, QD (3750 IU/D1)
     Route: 030
     Dates: start: 20250724, end: 20250724
  3. GEMZAR [Suspect]
     Active Substance: GEMCITABINE HYDROCHLORIDE
     Indication: Headache
     Dosage: 1.6 G, QD (1.6 G/D1)
     Route: 041
     Dates: start: 20250724, end: 20250724

REACTIONS (2)
  - Drug-induced liver injury [Recovering/Resolving]
  - Hepatic function abnormal [Recovering/Resolving]

NARRATIVE: CASE EVENT DATE: 20250728
